FAERS Safety Report 11310790 (Version 1)
Quarter: 2015Q3

REPORT INFORMATION
  Report Type: Spontaneous
  Country: TR (occurrence: TR)
  Receive Date: 20150726
  Receipt Date: 20150726
  Transmission Date: 20151125
  Serious: Yes (Death)
  Sender: FDA-Public Use
  Company Number: TR-CIPLA LTD.-2015TR05975

PATIENT

DRUGS (3)
  1. GEMCITABINE [Suspect]
     Active Substance: GEMCITABINE\GEMCITABINE HYDROCHLORIDE
     Indication: MESOTHELIOMA MALIGNANT
     Dosage: UNK
     Route: 065
  2. PEMETREXED [Suspect]
     Active Substance: PEMETREXED
     Indication: MESOTHELIOMA MALIGNANT
     Route: 065
  3. PLATINUM COMPOUNDS [Suspect]
     Active Substance: UNSPECIFIED INGREDIENT
     Indication: MESOTHELIOMA MALIGNANT
     Dosage: UNK
     Route: 065

REACTIONS (1)
  - Pneumonia [Fatal]
